FAERS Safety Report 5032141-2 (Version None)
Quarter: 2006Q2

REPORT INFORMATION
  Report Type: 
  Country: None (occurrence: None)
  Receive Date: 20060619
  Receipt Date: 20060612
  Transmission Date: 20061013
  Serious: Yes (Other)
  Sender: FDA-Public Use
  Company Number: 007722

PATIENT
  Age: 56 Year
  Sex: Female

DRUGS (3)
  1. MEDROXYPROGESTERONE ACETATE [Suspect]
     Dosage: ORAL
     Route: 048
     Dates: start: 19971001, end: 20030601
  2. PREMPHASE (PREMARIN;CYCRIN 14/14) [Suspect]
     Dosage: ORAL
     Route: 048
     Dates: start: 19970201, end: 19971001
  3. PREMPRO [Suspect]
     Dosage: ORAL
     Route: 048
     Dates: start: 20030601, end: 20040401

REACTIONS (1)
  - BREAST CANCER FEMALE [None]
